FAERS Safety Report 9374881 (Version 1)
Quarter: 2013Q2

REPORT INFORMATION
  Report Type: Spontaneous
  Country: US (occurrence: US)
  Receive Date: 20130628
  Receipt Date: 20130628
  Transmission Date: 20140414
  Serious: Yes (Other)
  Sender: FDA-Public Use
  Company Number: US-JNJFOC-20130611223

PATIENT
  Age: 68 Year
  Sex: Male
  Weight: 94.35 kg

DRUGS (1)
  1. XARELTO [Suspect]
     Indication: THROMBOSIS
     Dosage: FOR 21 DAYS
     Route: 048
     Dates: start: 20130526

REACTIONS (4)
  - Hypertension [Not Recovered/Not Resolved]
  - Thrombosis [Not Recovered/Not Resolved]
  - International normalised ratio decreased [Not Recovered/Not Resolved]
  - Pain in extremity [Not Recovered/Not Resolved]
